FAERS Safety Report 19057989 (Version 1)
Quarter: 2021Q1

REPORT INFORMATION
  Report Type: Spontaneous
  Country: ID (occurrence: ID)
  Receive Date: 20210324
  Receipt Date: 20210324
  Transmission Date: 20210420
  Serious: Yes (Other)
  Sender: FDA-Public Use
  Company Number: ID-ASTRAZENECA-2021A142915

PATIENT
  Age: 37 Year
  Sex: Female

DRUGS (1)
  1. TAGRISSO [Suspect]
     Active Substance: OSIMERTINIB
     Route: 048
     Dates: start: 20171207

REACTIONS (15)
  - Cold sweat [Unknown]
  - Paronychia [Unknown]
  - Pleural effusion [Unknown]
  - Atelectasis [Unknown]
  - Hepatomegaly [Recovered/Resolved]
  - Mucosal inflammation [Unknown]
  - Scoliosis [Unknown]
  - Pneumonitis [Unknown]
  - Pulmonary mass [Unknown]
  - Therapy partial responder [Unknown]
  - Paratracheal lymphadenopathy [Unknown]
  - Dizziness [Unknown]
  - Pulmonary fibrosis [Unknown]
  - Chest pain [Unknown]
  - Pericardial effusion [Unknown]

NARRATIVE: CASE EVENT DATE: 20180723
